FAERS Safety Report 4931354-5 (Version None)
Quarter: 2006Q1

REPORT INFORMATION
  Report Type: 
  Country: None (occurrence: None)
  Receive Date: 20060228
  Receipt Date: 20060215
  Transmission Date: 20060701
  Serious: Yes (Hospitalization)
  Sender: FDA-Public Use
  Company Number: 2006021976

PATIENT
  Age: 25 Year
  Sex: Female

DRUGS (1)
  1. LIPITOR [Suspect]
     Indication: SUICIDE ATTEMPT
     Dosage: 100 MG (100 MG0, ORAL
     Route: 048

REACTIONS (2)
  - OVERDOSE [None]
  - SUICIDE ATTEMPT [None]
